FAERS Safety Report 15678073 (Version 2)
Quarter: 2019Q1

REPORT INFORMATION
  Report Type: Spontaneous
  Country: US (occurrence: US)
  Receive Date: 20181201
  Receipt Date: 20190117
  Transmission Date: 20190417
  Serious: No
  Sender: FDA-Public Use
  Company Number: US-ASTRAZENECA-2018SF46581

PATIENT
  Sex: Female
  Weight: 72.6 kg

DRUGS (2)
  1. SYMBICORT [Suspect]
     Active Substance: BUDESONIDE\FORMOTEROL FUMARATE DIHYDRATE
     Indication: ASTHMA
     Dosage: 80/4.5 MCG, 2 PUFFS, TWICE A DAY
     Route: 055
  2. VENTOLIN [Concomitant]
     Active Substance: ALBUTEROL SULFATE
     Indication: PROPHYLAXIS
     Dosage: AS REQUIRED
     Route: 055

REACTIONS (10)
  - Constricted affect [Unknown]
  - Product use issue [Unknown]
  - Device defective [Unknown]
  - Feeling abnormal [Unknown]
  - Irregular breathing [Unknown]
  - Incorrect dose administered [Unknown]
  - Dyspnoea [Unknown]
  - Lymphangioleiomyomatosis [Unknown]
  - Off label use [Unknown]
  - Intentional device misuse [Unknown]
